FAERS Safety Report 7442449-9 (Version None)
Quarter: 2011Q2

REPORT INFORMATION
  Report Type: 
  Country: None (occurrence: None)
  Receive Date: 20110426
  Receipt Date: 20110426
  Transmission Date: 20111010
  Serious: No
  Sender: FDA-Public Use
  Company Number: None

PATIENT
  Age: 2 Year
  Sex: Male
  Weight: 15.4223 kg

DRUGS (6)
  1. ONDANSETRON [Concomitant]
  2. OFIRMEV [Suspect]
     Indication: PERIOPERATIVE ANALGESIA
     Dosage: 240 MG X1 IV BOLUS
     Route: 040
     Dates: start: 20110407, end: 20110407
  3. FENTANYL [Concomitant]
  4. GLYCOPYRROLATE [Concomitant]
  5. DEXAMETHASONE [Concomitant]
  6. LIDOCAINE [Concomitant]

REACTIONS (4)
  - POST PROCEDURAL COMPLICATION [None]
  - RESPIRATORY DISORDER [None]
  - LARYNGOSPASM [None]
  - DELAYED RECOVERY FROM ANAESTHESIA [None]
